FAERS Safety Report 5636311-1 (Version None)
Quarter: 2008Q1

REPORT INFORMATION
  Report Type: 
  Country: None (occurrence: None)
  Receive Date: 20080225
  Receipt Date: 20080206
  Transmission Date: 20080703
  Serious: Yes (Other)
  Sender: FDA-Public Use
  Company Number: NL-TEVA-154400ISR

PATIENT
  Sex: Female

DRUGS (2)
  1. IMIPRAMINE [Suspect]
     Route: 064
     Dates: start: 20060301
  2. OXAZEPAM [Suspect]
     Dates: start: 20040101

REACTIONS (2)
  - MECONIUM IN AMNIOTIC FLUID [None]
  - PREMATURE LABOUR [None]
